FAERS Safety Report 5191378-2 (Version None)
Quarter: 2006Q4

REPORT INFORMATION
  Report Type: 
  Country: None (occurrence: None)
  Receive Date: 20061226
  Receipt Date: 20030902
  Transmission Date: 20070319
  Serious: Yes (Hospitalization)
  Sender: FDA-Public Use
  Company Number: FR-MERCK-0309USA00329

PATIENT
  Age: 78 Year
  Sex: Male

DRUGS (6)
  1. MODURETIC 5-50 [Suspect]
     Route: 048
     Dates: end: 20030421
  2. CEBUTID [Suspect]
     Route: 048
     Dates: start: 19850101, end: 20030421
  3. LANZOR [Suspect]
     Indication: GASTROINTESTINAL ULCER
     Route: 048
     Dates: end: 20030421
  4. TILCOTIL [Suspect]
     Route: 048
     Dates: start: 19850101, end: 20030421
  5. TRIVASTAL [Suspect]
     Route: 048
     Dates: end: 20030421
  6. OLMIFON [Suspect]
     Route: 048
     Dates: end: 20030421

REACTIONS (6)
  - ANOREXIA [None]
  - ASTHENIA [None]
  - DIARRHOEA [None]
  - HYPOKALAEMIA [None]
  - NORMOCHROMIC NORMOCYTIC ANAEMIA [None]
  - WEIGHT DECREASED [None]
